FAERS Safety Report 8960558 (Version 1)
Quarter: 2012Q4

REPORT INFORMATION
  Report Type: Spontaneous
  Country: US (occurrence: None)
  Receive Date: 20121207
  Receipt Date: 20121207
  Transmission Date: 20130627
  Serious: Yes (Hospitalization)
  Sender: FDA-Public Use
  Company Number: None

PATIENT
  Age: 38 Year
  Sex: Female

DRUGS (1)
  1. ROPIVACAINE [Suspect]
     Dates: start: 20120824, end: 20120824

REACTIONS (4)
  - Convulsion [None]
  - Incorrect dose administered by device [None]
  - Overdose [None]
  - Product quality issue [None]
